FAERS Safety Report 8326155 (Version 3)
Quarter: 2012Q4

REPORT INFORMATION
  Report Type: Report from Study
  Country: US (occurrence: US)
  Receive Date: 20120106
  Receipt Date: 20121030
  Transmission Date: 20130627
  Serious: Yes (Death, Life-Threatening, Hospitalization)
  Sender: FDA-Public Use
  Company Number: US-CELGENEUS-163-AB007-11123036

PATIENT
  Age: 58 Year
  Sex: Female
  Weight: 94.2 kg

DRUGS (41)
  1. ABI-007 [Suspect]
     Indication: ADENOCARCINOMA PANCREAS
     Dosage: 125 milligram/sq. meter
     Route: 041
     Dates: start: 20111110
  2. ABI-007 [Suspect]
     Dosage: 100 milligram/sq. meter
     Route: 041
     Dates: end: 20111215
  3. GEMCITABINE [Suspect]
     Indication: ADENOCARCINOMA PANCREAS
     Dosage: 1000 milligram/sq. meter
     Route: 041
     Dates: start: 20111110
  4. GEMCITABINE [Suspect]
     Dosage: 800 milligram/sq. meter
     Route: 041
     Dates: end: 20111215
  5. CEPHALEXIN [Concomitant]
     Indication: DRUG USE FOR UNKNOWN INDICATION
     Dosage: 1500 Milligram
     Route: 065
  6. LOVENOX [Concomitant]
     Indication: DRUG USE FOR UNKNOWN INDICATION
     Dosage: .9 Milligram
     Route: 058
  7. FENTANYL [Concomitant]
     Indication: DRUG USE FOR UNKNOWN INDICATION
     Dosage: 75 Microgram
     Route: 061
  8. LASIX [Concomitant]
     Indication: DRUG USE FOR UNKNOWN INDICATION
     Route: 065
  9. GABAPENTIN [Concomitant]
     Indication: DRUG USE FOR UNKNOWN INDICATION
     Dosage: 2400 Milligram
     Route: 065
  10. GLIPIZIDE [Concomitant]
     Indication: DRUG USE FOR UNKNOWN INDICATION
     Dosage: 20 Milligram
     Route: 048
  11. LEVOTHYROXINE [Concomitant]
     Indication: DRUG USE FOR UNKNOWN INDICATION
     Dosage: 125 Microgram
     Route: 048
  12. MAGNESIUM OXIDE [Concomitant]
     Indication: DRUG USE FOR UNKNOWN INDICATION
     Dosage: 400 Milligram
     Route: 048
  13. OMEPRAZOLE [Concomitant]
     Indication: DRUG USE FOR UNKNOWN INDICATION
     Dosage: 40 Milligram
     Route: 065
  14. SPIRONOLACTONE [Concomitant]
     Indication: DRUG USE FOR UNKNOWN INDICATION
     Dosage: 200 Milligram
     Route: 065
  15. CEFTRIAXONE [Concomitant]
     Indication: UTI
     Route: 065
     Dates: start: 2011
  16. VANCOMYCIN [Concomitant]
     Indication: CELLULITIS
     Dosage: 1 Gram
     Route: 041
     Dates: start: 20111220, end: 20111220
  17. PLATELETS [Concomitant]
     Indication: THROMBOCYTOPENIA
     Dosage: 4 and 6 units
     Route: 041
     Dates: start: 2011
  18. BLOOD [Concomitant]
     Indication: HEMOGLOBIN LOW
     Dosage: 2 units
     Route: 041
     Dates: start: 2011, end: 2011
  19. BICARBONATE [Concomitant]
     Indication: HYPERKALEMIA
     Route: 065
     Dates: start: 2011
  20. INSULIN [Concomitant]
     Indication: HYPERKALEMIA
     Route: 065
     Dates: start: 2011
  21. KAYEXALATE [Concomitant]
     Indication: HYPERKALEMIA
     Dosage: 30 Gram
     Route: 054
     Dates: start: 20111220, end: 20111220
  22. GLUCOSE [Concomitant]
     Indication: DRUG USE FOR UNKNOWN INDICATION
     Dosage: 25 Gram
     Route: 041
     Dates: start: 20111220, end: 20111220
  23. HUMALOG [Concomitant]
     Indication: DRUG USE FOR UNKNOWN INDICATION
     Dosage: 10 units
     Route: 058
     Dates: start: 20111220, end: 20111220
  24. SODIUM BICARBONATE [Concomitant]
     Indication: DRUG USE FOR UNKNOWN INDICATION
     Dosage: 50 Milliequivalents
     Route: 041
     Dates: start: 20111220, end: 20111220
  25. SODIUM CHLORIDE [Concomitant]
     Indication: DRUG USE FOR UNKNOWN INDICATION
     Dosage: 1000 milliliter
     Route: 041
     Dates: start: 20111220, end: 20111220
  26. NOREPINEPHRINE [Concomitant]
     Indication: DRUG USE FOR UNKNOWN INDICATION
     Dosage: 16 Milligram
     Route: 041
  27. FLUCONAZOLE [Concomitant]
     Indication: THRUSH
     Dosage: 100 Milligram
     Route: 041
  28. FUROSEMIDE [Concomitant]
     Indication: DRUG USE FOR UNKNOWN INDICATION
     Dosage: 40 Milligram
     Route: 048
  29. KEFLEX [Concomitant]
     Indication: CELLULITIS
     Route: 065
  30. FLUID [Concomitant]
     Indication: DRUG USE FOR UNKNOWN INDICATION
     Route: 041
  31. DEXAMETHASONE [Concomitant]
     Indication: DRUG USE FOR UNKNOWN INDICATION
     Dosage: 8 Milligram
     Route: 041
  32. CEFEPIME [Concomitant]
     Indication: DRUG USE FOR UNKNOWN INDICATION
     Dosage: 8 Milligram
     Route: 041
  33. HEPARIN [Concomitant]
     Indication: DRUG USE FOR UNKNOWN INDICATION
     Dosage: 100 milliliter
     Route: 041
  34. LIDOCAINE [Concomitant]
     Indication: DRUG USE FOR UNKNOWN INDICATION
     Dosage: 1 Percent
     Route: 065
  35. METRONIDAZOLE [Concomitant]
     Indication: DRUG USE FOR UNKNOWN INDICATION
     Dosage: 2000 Milligram
     Route: 041
  36. NYSTATIN [Concomitant]
     Indication: DRUG USE FOR UNKNOWN INDICATION
     Dosage: 5 milliliter
     Route: 048
  37. PANTOPRAZOLE [Concomitant]
     Indication: DRUG USE FOR UNKNOWN INDICATION
     Dosage: 40 Milligram
     Route: 041
  38. ALTEPLASE [Concomitant]
     Indication: DRUG USE FOR UNKNOWN INDICATION
     Dosage: 2 Milligram
     Route: 065
  39. HYDROMORPHONE [Concomitant]
     Indication: DRUG USE FOR UNKNOWN INDICATION
     Dosage: .2 Milligram
     Route: 041
  40. COSYNTROPIN [Concomitant]
     Indication: DRUG USE FOR UNKNOWN INDICATION
     Dosage: .25 Milligram
     Route: 041
  41. CIPROFLOXACIN [Concomitant]
     Indication: DRUG USE FOR UNKNOWN INDICATION
     Route: 065

REACTIONS (1)
  - Neutropenic sepsis [Not Recovered/Not Resolved]
